FAERS Safety Report 5035571-8 (Version None)
Quarter: 2006Q2

REPORT INFORMATION
  Report Type: 
  Country: None (occurrence: None)
  Receive Date: 20060622
  Receipt Date: 20060606
  Transmission Date: 20061013
  Serious: Yes (Hospitalization)
  Sender: FDA-Public Use
  Company Number: DSA_28296_2006

PATIENT
  Age: 75 Year
  Sex: Male

DRUGS (4)
  1. TEMESTA [Suspect]
     Dosage: 0.5 MG QD PO
     Route: 048
     Dates: start: 20060525, end: 20060526
  2. PAROXETINE HCL [Suspect]
     Dosage: 10 MG QD PO
     Route: 048
     Dates: start: 20060522
  3. ZYPREXA [Suspect]
     Dosage: 5 MG QD PO
     Route: 048
     Dates: start: 20060525, end: 20060525
  4. ZYPREXA [Suspect]
     Dosage: 2.5 MG Q DAY PO
     Route: 048
     Dates: start: 20060526

REACTIONS (10)
  - ASTHENIA [None]
  - DRUG DEPENDENCE [None]
  - DRUG INTERACTION [None]
  - FLUID INTAKE REDUCED [None]
  - HYPOTENSION [None]
  - LEFT VENTRICULAR FAILURE [None]
  - MOBILITY DECREASED [None]
  - STEAL SYNDROME [None]
  - VASCULAR ENCEPHALOPATHY [None]
  - VERTIGO [None]
